FAERS Safety Report 5430033-8 (Version None)
Quarter: 2007Q3

REPORT INFORMATION
  Report Type: 
  Country: None (occurrence: None)
  Receive Date: 20070829
  Receipt Date: 20070817
  Transmission Date: 20080115
  Serious: Yes (Death)
  Sender: FDA-Public Use
  Company Number: HK-PFIZER INC-2007067472

PATIENT
  Sex: Male
  Weight: 72.2 kg

DRUGS (3)
  1. SUTENT [Suspect]
     Indication: METASTATIC NEOPLASM
     Route: 048
     Dates: start: 20070809, end: 20070813
  2. ATENOLOL [Concomitant]
     Route: 048
  3. PANADOL [Concomitant]
     Route: 048
     Dates: start: 20070808

REACTIONS (1)
  - EPISTAXIS [None]
